FAERS Safety Report 16056710 (Version 1)
Quarter: 2019Q2

REPORT INFORMATION
  Report Type: Spontaneous
  Country: US (occurrence: US)
  Receive Date: 20190310
  Receipt Date: 20190310
  Transmission Date: 20190711
  Serious: Yes (Disabling, Other)
  Sender: FDA-Public Use
  Company Number: None

PATIENT
  Age: 54 Year
  Sex: Female

DRUGS (3)
  1. LEVAQUIN [Suspect]
     Active Substance: LEVOFLOXACIN
     Indication: PRODUCT USED FOR UNKNOWN INDICATION
     Dosage: ?          OTHER FREQUENCY:VARIED;?
     Route: 048
     Dates: start: 20090101, end: 20190310
  2. LEVAQUIN [Suspect]
     Active Substance: LEVOFLOXACIN
     Indication: URINARY TRACT INFECTION
     Dosage: ?          OTHER FREQUENCY:VARIED;?
     Route: 048
     Dates: start: 20090101, end: 20190310
  3. CIPROFLOXACIN. [Suspect]
     Active Substance: CIPROFLOXACIN

REACTIONS (4)
  - Panic attack [None]
  - Tendon pain [None]
  - Anxiety [None]
  - Arthralgia [None]

NARRATIVE: CASE EVENT DATE: 20090101
